FAERS Safety Report 6910432-5 (Version None)
Quarter: 2010Q3

REPORT INFORMATION
  Report Type: 
  Country: None (occurrence: None)
  Receive Date: 20100806
  Receipt Date: 20100727
  Transmission Date: 20110219
  Serious: Yes (Other)
  Sender: FDA-Public Use
  Company Number: BR-PFIZER INC-2010075743

PATIENT
  Age: 48 Year
  Sex: Female
  Weight: 65 kg

DRUGS (4)
  1. CHAMPIX [Suspect]
     Indication: TOBACCO USER
     Dosage: 1 MG, 1X/DAY
     Route: 048
     Dates: start: 20100417, end: 20100701
  2. CHAMPIX [Suspect]
     Dosage: 1 MG, 2X/DAY, EVERY 12 HOURS
     Route: 048
     Dates: start: 20100601, end: 20100101
  3. CHAMPIX [Suspect]
     Dosage: 1 MG, 1X/DAY, IN THE MORNING
     Route: 048
     Dates: start: 20100101, end: 20100701
  4. CLONAZEPAM [Concomitant]
     Indication: INSOMNIA
     Dosage: UNK

REACTIONS (2)
  - ABDOMINAL PAIN [None]
  - HAEMORRHOIDS [None]
